FAERS Safety Report 23130579 (Version 2)
Quarter: 2023Q4

REPORT INFORMATION
  Report Type: Spontaneous
  Country: US (occurrence: US)
  Receive Date: 20231031
  Receipt Date: 20231227
  Transmission Date: 20240109
  Serious: No
  Sender: FDA-Public Use
  Company Number: US-PFIZER INC-PV202300174854

PATIENT
  Sex: Female

DRUGS (5)
  1. ZAVZPRET [Suspect]
     Active Substance: ZAVEGEPANT HYDROCHLORIDE
     Indication: Migraine
     Dosage: UNK
     Route: 055
  2. TRUDHESA [Concomitant]
     Active Substance: DIHYDROERGOTAMINE MESYLATE
     Dosage: UNK
  3. TYLENOL [Concomitant]
     Active Substance: ACETAMINOPHEN
     Dosage: UNK
  4. BENADRYL [Concomitant]
     Active Substance: DIPHENHYDRAMINE HYDROCHLORIDE
     Dosage: UNK
  5. DRONABINOL [Concomitant]
     Active Substance: DRONABINOL
     Dosage: UNK

REACTIONS (17)
  - Therapeutic product effect incomplete [Recovering/Resolving]
  - Headache [Unknown]
  - Neck pain [Unknown]
  - Brain fog [Unknown]
  - Dry eye [Unknown]
  - Eye irritation [Unknown]
  - Vision blurred [Unknown]
  - Sinus congestion [Unknown]
  - Ear discomfort [Unknown]
  - Tinnitus [Unknown]
  - Nausea [Unknown]
  - Throat irritation [Unknown]
  - Abdominal pain upper [Unknown]
  - Tachycardia [Unknown]
  - Hypotension [Unknown]
  - Dysgeusia [Unknown]
  - Nasal discomfort [Unknown]
